FAERS Safety Report 9200027 (Version 2)
Quarter: 2013Q2

REPORT INFORMATION
  Report Type: Spontaneous
  Country: JP (occurrence: JP)
  Receive Date: 20130329
  Receipt Date: 20130412
  Transmission Date: 20140414
  Serious: Yes (Hospitalization)
  Sender: FDA-Public Use
  Company Number: JP-PFIZER INC-2013100670

PATIENT
  Age: 7 Decade
  Sex: Male

DRUGS (9)
  1. CELECOX [Suspect]
     Indication: PERIARTHRITIS
     Dosage: 100 MG, 2X/DAY
     Route: 048
     Dates: start: 20130225, end: 20130228
  2. ACINON [Concomitant]
     Dosage: UNK
  3. GASLON [Concomitant]
     Indication: PERIARTHRITIS
     Dosage: UNK
     Dates: start: 20130225, end: 20130228
  4. METGLUCO [Concomitant]
     Dosage: UNK
  5. BEZATATE [Concomitant]
     Dosage: UNK
  6. CETIRIZINE HYDROCHLORIDE [Concomitant]
     Dosage: UNK
  7. NESINA [Concomitant]
     Dosage: UNK
  8. GLIMEPIRIDE [Concomitant]
     Dosage: UNK
  9. ACTOS [Concomitant]
     Dosage: UNK

REACTIONS (3)
  - Peptic ulcer [Recovered/Resolved]
  - Melaena [Recovered/Resolved]
  - Haematemesis [Recovered/Resolved]
